FAERS Safety Report 24941100 (Version 2)
Quarter: 2025Q1

REPORT INFORMATION
  Report Type: Report from Study
  Country: ES (occurrence: ES)
  Receive Date: 20250207
  Receipt Date: 20250224
  Transmission Date: 20250409
  Serious: Yes (Hospitalization)
  Sender: ULTRAGENYX PHARMACEUTICAL
  Company Number: ES-ULTRAGENYX PHARMACEUTICAL INC.-ES-UGX-25-00158

PATIENT
  Age: 9 Year
  Sex: Female

DRUGS (2)
  1. TRIHEPTANOIN [Suspect]
     Active Substance: TRIHEPTANOIN
     Indication: Carnitine palmitoyltransferase deficiency
     Dosage: 2.5 GRAM PER KILOGRAM, PER DAY
     Route: 048
     Dates: start: 20181114
  2. TRIHEPTANOIN [Suspect]
     Active Substance: TRIHEPTANOIN
     Route: 048
     Dates: start: 20250123

REACTIONS (3)
  - Blood creatine phosphokinase increased [Recovered/Resolved]
  - Ammonia increased [Recovered/Resolved]
  - Influenza [Recovering/Resolving]

NARRATIVE: CASE EVENT DATE: 20250112
